FAERS Safety Report 5810856-3 (Version None)
Quarter: 2008Q3

REPORT INFORMATION
  Report Type: 
  Country: None (occurrence: None)
  Receive Date: 20080710
  Receipt Date: 20080625
  Transmission Date: 20090109
  Serious: Yes (Hospitalization)
  Sender: FDA-Public Use
  Company Number: A-US2008-19835

PATIENT
  Age: 80 Year
  Sex: Female
  Weight: 77 kg

DRUGS (11)
  1. TRACLEER [Suspect]
     Indication: PULMONARY ARTERIAL HYPERTENSION
     Dosage: 125 MG, BID, ORAL, 62.5 MG, BID, ORAL, 125 MG, QAM, ORAL, 62.5 MG, QPM, ORAL
     Route: 048
     Dates: start: 20080114, end: 20080415
  2. TRACLEER [Suspect]
     Indication: PULMONARY ARTERIAL HYPERTENSION
     Dosage: 125 MG, BID, ORAL, 62.5 MG, BID, ORAL, 125 MG, QAM, ORAL, 62.5 MG, QPM, ORAL
     Route: 048
     Dates: start: 20080416, end: 20080602
  3. TRACLEER [Suspect]
     Indication: PULMONARY ARTERIAL HYPERTENSION
     Dosage: 125 MG, BID, ORAL, 62.5 MG, BID, ORAL, 125 MG, QAM, ORAL, 62.5 MG, QPM, ORAL
     Route: 048
     Dates: start: 20080603
  4. TRACLEER [Suspect]
     Indication: PULMONARY ARTERIAL HYPERTENSION
     Dosage: 125 MG, BID, ORAL, 62.5 MG, BID, ORAL, 125 MG, QAM, ORAL, 62.5 MG, QPM, ORAL
     Route: 048
     Dates: start: 20080603
  5. LISINOPRIL (LINSINOPRIL) [Concomitant]
  6. PROPRANOLOL [Concomitant]
  7. CENTRUM SILVER (ASCORBIC ACID, CALCIUM, MINERALS NOS, RETINOL, TOCOPHE [Concomitant]
  8. NORCO [Concomitant]
  9. FLEXERIL [Concomitant]
  10. NYSTATIN [Concomitant]
  11. CARMOL (UREA) [Concomitant]

REACTIONS (15)
  - ALANINE AMINOTRANSFERASE INCREASED [None]
  - ASPARTATE AMINOTRANSFERASE INCREASED [None]
  - BLOOD ALKALINE PHOSPHATASE INCREASED [None]
  - BLOOD PRESSURE DECREASED [None]
  - CHOLELITHIASIS [None]
  - DYSPNOEA [None]
  - DYSPNOEA EXERTIONAL [None]
  - EPISTAXIS [None]
  - HYPOXIA [None]
  - JOINT SWELLING [None]
  - NAUSEA [None]
  - OEDEMA PERIPHERAL [None]
  - PLEURAL EFFUSION [None]
  - PLEURAL FIBROSIS [None]
  - VOMITING [None]
